FAERS Safety Report 7327893-2 (Version None)
Quarter: 2011Q1

REPORT INFORMATION
  Report Type: 
  Country: None (occurrence: None)
  Receive Date: 20110224
  Receipt Date: 20110224
  Transmission Date: 20110831
  Serious: No
  Sender: FDA-Public Use
  Company Number: None

PATIENT

DRUGS (2)
  1. AMIODARONE [Suspect]
  2. SIMVASTATIN [Suspect]

REACTIONS (7)
  - ARTHRALGIA [None]
  - FALL [None]
  - MUSCLE DISORDER [None]
  - INJURY [None]
  - POLYURIA [None]
  - WEIGHT INCREASED [None]
  - BLOOD CREATINE PHOSPHOKINASE INCREASED [None]
